FAERS Safety Report 6034223-5 (Version None)
Quarter: 2009Q1

REPORT INFORMATION
  Report Type: 
  Country: None (occurrence: None)
  Receive Date: 20090112
  Receipt Date: 20081229
  Transmission Date: 20090719
  Serious: Yes (Other)
  Sender: FDA-Public Use
  Company Number: JP-ROCHE-606306

PATIENT

DRUGS (3)
  1. MYCOPHENOLATE MOFETIL [Suspect]
     Dosage: GROUP B.
     Route: 048
  2. FK 506 [Suspect]
     Dosage: ROUTE: CONTINUOUS INTRAVENOUS INFUSION.
     Route: 042
  3. FK 506 [Suspect]
     Dosage: ROUTE: ORAL.
     Route: 048

REACTIONS (1)
  - TRANSPLANT REJECTION [None]
